FAERS Safety Report 12893587 (Version 1)
Quarter: 2016Q4

REPORT INFORMATION
  Report Type: Spontaneous
  Country: US (occurrence: US)
  Receive Date: 20161027
  Receipt Date: 20161027
  Transmission Date: 20170207
  Serious: Yes (Hospitalization, Disabling)
  Sender: FDA-Public Use
  Company Number: None

PATIENT
  Age: 41 Year
  Sex: Female
  Weight: 99.9 kg

DRUGS (9)
  1. INSULIN [Concomitant]
     Active Substance: INSULIN NOS
  2. RAMAPRIL [Concomitant]
  3. GLYBURIDE. [Concomitant]
     Active Substance: GLYBURIDE
  4. MILK THISTLE [Concomitant]
     Active Substance: MILK THISTLE
  5. FOLIC ACID WITH OMEGA 3 AND VITAMIN E [Concomitant]
  6. FENUGREEK [Concomitant]
     Active Substance: FENUGREEK SEED
  7. INVEGA SUSTENNA [Suspect]
     Active Substance: PALIPERIDONE PALMITATE
     Indication: PSYCHOTIC DISORDER
     Dosage: ?          QUANTITY:100 MGS;OTHER FREQUENCY:MONTHLY;?
     Route: 030
  8. NAPROXEN. [Concomitant]
     Active Substance: NAPROXEN
  9. B CHEWABLE COMPLEX [Concomitant]

REACTIONS (3)
  - Abnormal behaviour [None]
  - Myalgia [None]
  - Menstrual disorder [None]

NARRATIVE: CASE EVENT DATE: 20161019
